FAERS Safety Report 12501717 (Version 1)
Quarter: 2016Q2

REPORT INFORMATION
  Report Type: Spontaneous
  Country: FR (occurrence: FR)
  Receive Date: 20160627
  Receipt Date: 20160627
  Transmission Date: 20160815
  Serious: Yes (Hospitalization)
  Sender: FDA-Public Use
  Company Number: FR-PFIZER INC-2016304904

PATIENT
  Age: 62 Year
  Sex: Female

DRUGS (3)
  1. ESOMEPRAZOLE [Concomitant]
     Active Substance: ESOMEPRAZOLE
     Dosage: UNK
     Dates: start: 20150122
  2. ANSATIPINE [Suspect]
     Active Substance: RIFABUTIN
     Indication: GASTRIC ULCER HELICOBACTER
     Dosage: UNK, DAILY
     Route: 048
     Dates: start: 20150122
  3. AMOXICILLIN. [Suspect]
     Active Substance: AMOXICILLIN
     Indication: GASTRIC ULCER HELICOBACTER
     Dosage: UNK
     Route: 048
     Dates: start: 20150122

REACTIONS (1)
  - Acute generalised exanthematous pustulosis [Recovered/Resolved]

NARRATIVE: CASE EVENT DATE: 20150130
